FAERS Safety Report 11848848 (Version 2)
Quarter: 2016Q1

REPORT INFORMATION
  Report Type: Spontaneous
  Country: US (occurrence: US)
  Receive Date: 20151218
  Receipt Date: 20160106
  Transmission Date: 20160526
  Serious: Yes (Other)
  Sender: FDA-Public Use
  Company Number: US-AUROBINDO-AUR-APL-2015-11341

PATIENT
  Age: 59 Year
  Sex: Male

DRUGS (1)
  1. LIDOCAINE. [Suspect]
     Active Substance: LIDOCAINE
     Indication: PRODUCT USED FOR UNKNOWN INDICATION
     Route: 065

REACTIONS (4)
  - Methaemoglobinaemia [Recovering/Resolving]
  - Cyanosis [Recovering/Resolving]
  - Oxygen saturation decreased [Recovering/Resolving]
  - Respiratory distress [Recovering/Resolving]
